FAERS Safety Report 23601486 (Version 3)
Quarter: 2024Q3

REPORT INFORMATION
  Report Type: Spontaneous
  Country: US (occurrence: US)
  Receive Date: 20240306
  Receipt Date: 20240930
  Transmission Date: 20241017
  Serious: Yes (Other)
  Sender: AUROBINDO
  Company Number: US-MLMSERVICE-20240216-4838120-1

PATIENT
  Age: 64 Year
  Sex: Male

DRUGS (9)
  1. METOPROLOL [Interacting]
     Active Substance: METOPROLOL
     Indication: Heart failure with reduced ejection fraction
     Dosage: 12.5 MILLIGRAM, ONCE A DAY
     Route: 065
  2. SPIRONOLACTONE [Suspect]
     Active Substance: SPIRONOLACTONE
     Indication: Heart failure with reduced ejection fraction
     Dosage: UNK
     Route: 065
  3. TORSEMIDE [Interacting]
     Active Substance: TORSEMIDE
     Indication: Heart failure with reduced ejection fraction
     Dosage: 50 MILLIGRAM, TWO TIMES A DAY
     Route: 065
  4. TORSEMIDE [Interacting]
     Active Substance: TORSEMIDE
     Dosage: 50 MILLIGRAM, ONCE A DAY
     Route: 065
  5. SACUBITRIL\VALSARTAN [Interacting]
     Active Substance: SACUBITRIL\VALSARTAN
     Indication: Heart failure with reduced ejection fraction
     Dosage: 1 DOSAGE FORM, TWO TIMES A DAY (49/51 MG TWICE DAILY)
     Route: 065
  6. TIRZEPATIDE [Interacting]
     Active Substance: TIRZEPATIDE
     Indication: Weight decreased
     Dosage: 10 MILLIGRAM, EVERY WEEK
     Route: 065
  7. TIRZEPATIDE [Interacting]
     Active Substance: TIRZEPATIDE
     Dosage: 12.5 MILLIGRAM, EVERY WEEK (INCREASED AFTER 4 MONTHS )
     Route: 065
  8. EMPAGLIFLOZIN [Concomitant]
     Active Substance: EMPAGLIFLOZIN
     Indication: Type 2 diabetes mellitus
     Dosage: 50 MILLIGRAM, TWO TIMES A DAY
     Route: 065
  9. SEMAGLUTIDE [Suspect]
     Active Substance: SEMAGLUTIDE
     Indication: Type 2 diabetes mellitus
     Dosage: 2 MILLIGRAM, EVERY WEEK

REACTIONS (9)
  - Hyperkalaemia [Unknown]
  - Sinus tachycardia [Unknown]
  - Blood potassium increased [Unknown]
  - Blood creatinine increased [Recovering/Resolving]
  - Acute kidney injury [Recovered/Resolved]
  - Hypotension [Recovered/Resolved]
  - Drug interaction [Recovered/Resolved]
  - Urinary tract infection [Unknown]
  - Sepsis [Unknown]
